FAERS Safety Report 8374845-X (Version None)
Quarter: 2012Q2

REPORT INFORMATION
  Report Type: 
  Country: None (occurrence: None)
  Receive Date: 20120521
  Receipt Date: 20120507
  Transmission Date: 20120825
  Serious: No
  Sender: FDA-Public Use
  Company Number: US-ASTRAZENECA-2012SE29366

PATIENT
  Age: 56 Year
  Sex: Male

DRUGS (2)
  1. NEXIUM [Suspect]
     Indication: ULCER
     Route: 048
  2. PRILOSEC [Suspect]
     Indication: ULCER
     Route: 048

REACTIONS (4)
  - ABDOMINAL PAIN UPPER [None]
  - OFF LABEL USE [None]
  - INTENTIONAL DRUG MISUSE [None]
  - VOMITING [None]
